FAERS Safety Report 16405014 (Version 6)
Quarter: 2019Q4

REPORT INFORMATION
  Report Type: Spontaneous
  Country: FR (occurrence: FR)
  Receive Date: 20190607
  Receipt Date: 20191216
  Transmission Date: 20200122
  Serious: Yes (Death, Congenital Anomaly, Other)
  Sender: FDA-Public Use
  Company Number: FR-ASTRAZENECA-2019SE83158

PATIENT
  Sex: Female
  Weight: .1 kg

DRUGS (10)
  1. DIFFU K [Suspect]
     Active Substance: POTASSIUM CHLORIDE
     Indication: FOETAL EXPOSURE DURING PREGNANCY
     Route: 064
     Dates: start: 20180204
  2. ESOMEPRAZOLE. [Suspect]
     Active Substance: ESOMEPRAZOLE MAGNESIUM
     Indication: PROPHYLAXIS
     Route: 064
     Dates: start: 20180204, end: 20180718
  3. CORTANCYL [Suspect]
     Active Substance: PREDNISONE
     Indication: SJOGREN^S SYNDROME
     Route: 064
     Dates: start: 20180204
  4. IMUREL [Suspect]
     Active Substance: AZATHIOPRINE SODIUM
     Indication: FOETAL EXPOSURE DURING PREGNANCY
     Route: 064
     Dates: start: 20180204
  5. ESOMEPRAZOLE. [Suspect]
     Active Substance: ESOMEPRAZOLE MAGNESIUM
     Indication: FOETAL EXPOSURE DURING PREGNANCY
     Route: 064
     Dates: start: 20180204, end: 20180718
  6. CORTANCYL [Suspect]
     Active Substance: PREDNISONE
     Indication: FOETAL EXPOSURE DURING PREGNANCY
     Route: 064
     Dates: start: 20180204
  7. PLAQUENIL [Suspect]
     Active Substance: HYDROXYCHLOROQUINE SULFATE
     Indication: SJOGREN^S SYNDROME
     Route: 064
     Dates: start: 20180204
  8. PLAQUENIL [Suspect]
     Active Substance: HYDROXYCHLOROQUINE SULFATE
     Indication: FOETAL EXPOSURE DURING PREGNANCY
     Route: 064
     Dates: start: 20180204
  9. DIFFU K [Suspect]
     Active Substance: POTASSIUM CHLORIDE
     Indication: MINERAL SUPPLEMENTATION
     Route: 064
     Dates: start: 20180204
  10. IMUREL [Suspect]
     Active Substance: AZATHIOPRINE SODIUM
     Indication: SJOGREN^S SYNDROME
     Route: 064
     Dates: start: 20180204

REACTIONS (9)
  - Right-to-left cardiac shunt [Fatal]
  - Premature separation of placenta [Not Recovered/Not Resolved]
  - Congenital osteodystrophy [Not Recovered/Not Resolved]
  - Maternal exposure during pregnancy [Unknown]
  - Congenital bowing of long bones [Not Recovered/Not Resolved]
  - Foetal growth restriction [Not Recovered/Not Resolved]
  - Patent ductus arteriosus [Fatal]
  - Low birth weight baby [Unknown]
  - Premature baby [Fatal]

NARRATIVE: CASE EVENT DATE: 201802
